FAERS Safety Report 22076177 (Version 1)
Quarter: 2023Q1

REPORT INFORMATION
  Report Type: Spontaneous
  Country: FR (occurrence: FR)
  Receive Date: 20230309
  Receipt Date: 20230309
  Transmission Date: 20230418
  Serious: Yes (Hospitalization)
  Sender: FDA-Public Use
  Company Number: FR-AMGEN-FRASP2023038706

PATIENT
  Age: 71 Year
  Sex: Male

DRUGS (1)
  1. XGEVA [Suspect]
     Active Substance: DENOSUMAB
     Indication: Prostate cancer metastatic
     Route: 058
     Dates: start: 20220105

REACTIONS (5)
  - Pyrexia [Recovering/Resolving]
  - C-reactive protein increased [Recovering/Resolving]
  - General physical health deterioration [Recovering/Resolving]
  - Back pain [Recovering/Resolving]
  - Dyspnoea [Recovering/Resolving]

NARRATIVE: CASE EVENT DATE: 20221101
